FAERS Safety Report 4455401-2 (Version None)
Quarter: 2004Q3

REPORT INFORMATION
  Report Type: 
  Country: None (occurrence: None)
  Receive Date: 20040830
  Receipt Date: 20040401
  Transmission Date: 20050211
  Serious: No
  Sender: FDA-Public Use
  Company Number: 205540

PATIENT
  Age: 57 Year
  Sex: Male

DRUGS (6)
  1. XOLAIR [Suspect]
     Indication: ASTHMA
     Dosage: 375 MG,Q2W SEE IMAGE
     Dates: start: 20040227
  2. XOLAIR [Suspect]
     Indication: ASTHMA
     Dosage: 375 MG,Q2W SEE IMAGE
     Dates: start: 20040227
  3. SINGULAIR [Concomitant]
  4. PULMICORT [Concomitant]
  5. CLARINEX [Concomitant]
  6. NEXIUM [Concomitant]

REACTIONS (1)
  - DIZZINESS [None]
